FAERS Safety Report 13920556 (Version 1)
Quarter: 2017Q3

REPORT INFORMATION
  Report Type: Report from Study
  Country: BR (occurrence: BR)
  Receive Date: 20170830
  Receipt Date: 20170830
  Transmission Date: 20171127
  Serious: Yes (Other)
  Sender: FDA-Public Use
  Company Number: PHHY2017BR126212

PATIENT
  Sex: Female
  Weight: 50 kg

DRUGS (3)
  1. OSTEOBAN [Concomitant]
     Indication: PRODUCT USED FOR UNKNOWN INDICATION
     Route: 065
  2. PROTOS [Concomitant]
     Indication: PRODUCT USED FOR UNKNOWN INDICATION
     Route: 065
  3. ACLASTA [Suspect]
     Active Substance: ZOLEDRONIC ACID
     Indication: OSTEOPOROSIS
     Dosage: 1 DF (5 MG/100 ML), Q12MO
     Route: 042
     Dates: start: 20170613, end: 20170613

REACTIONS (5)
  - Visual impairment [Unknown]
  - Hypoacusis [Unknown]
  - Macular hole [Unknown]
  - Haemorrhage [Unknown]
  - Asthenia [Unknown]
